FAERS Safety Report 9272770 (Version 1)
Quarter: 2013Q2

REPORT INFORMATION
  Report Type: Spontaneous
  Country: US (occurrence: US)
  Receive Date: 20130506
  Receipt Date: 20130506
  Transmission Date: 20140414
  Serious: No
  Sender: FDA-Public Use
  Company Number: US-ASTRAZENECA-2012SE33017

PATIENT
  Age: 68 Year
  Sex: Female

DRUGS (7)
  1. PRILOSEC OTC [Suspect]
     Route: 048
  2. TOPIRAMATE [Concomitant]
     Dosage: UNKNOWN
  3. LEVOTHYROXINE [Concomitant]
  4. CALCIUM [Concomitant]
     Dosage: UNKNOWN
  5. GLUCOSAMINE [Concomitant]
     Dosage: UNKNOWN
  6. AREX 2 FORMULA [Concomitant]
     Dosage: UNKNOWN
  7. AMBIEN [Concomitant]

REACTIONS (2)
  - Arthritis [Not Recovered/Not Resolved]
  - Arthralgia [Not Recovered/Not Resolved]
